FAERS Safety Report 21333364 (Version 1)
Quarter: 2022Q3

REPORT INFORMATION
  Report Type: Spontaneous
  Country: CN (occurrence: CN)
  Receive Date: 20220914
  Receipt Date: 20220914
  Transmission Date: 20221027
  Serious: Yes (Hospitalization, Other)
  Sender: FDA-Public Use
  Company Number: CN-SANOFI-01261749

PATIENT
  Sex: Male

DRUGS (2)
  1. LANTUS [Suspect]
     Active Substance: INSULIN GLARGINE
     Indication: Type 1 diabetes mellitus
     Dosage: UNK
  2. NOVOLIN L [Concomitant]
     Active Substance: INSULIN HUMAN

REACTIONS (4)
  - Retinal haemorrhage [Unknown]
  - Blood glucose abnormal [Recovering/Resolving]
  - Skin ulcer [Unknown]
  - Visual impairment [Unknown]
